FAERS Safety Report 11250514 (Version 1)
Quarter: 2015Q3

REPORT INFORMATION
  Report Type: Spontaneous
  Country: US (occurrence: US)
  Receive Date: 20150708
  Receipt Date: 20150708
  Transmission Date: 20151125
  Serious: No
  Sender: FDA-Public Use
  Company Number: US-ELI_LILLY_AND_COMPANY-US201011004462

PATIENT
  Age: 12 Year
  Sex: Female

DRUGS (3)
  1. DIPHENHYDRAMINE. [Concomitant]
     Active Substance: DIPHENHYDRAMINE
     Indication: INSOMNIA
  2. SYMBYAX [Suspect]
     Active Substance: FLUOXETINE HYDROCHLORIDE\OLANZAPINE
     Indication: BIPOLAR DISORDER
     Dosage: 3/25 MG, UNKNOWN
     Dates: start: 20100920
  3. SYMBYAX [Suspect]
     Active Substance: FLUOXETINE HYDROCHLORIDE\OLANZAPINE
     Dosage: 6/25 MG, UNKNOWN
     Dates: start: 201010, end: 20101108

REACTIONS (3)
  - Pollakiuria [Unknown]
  - Hypersexuality [Unknown]
  - Off label use [Unknown]
